FAERS Safety Report 22001510 (Version 1)
Quarter: 2023Q1

REPORT INFORMATION
  Report Type: Spontaneous
  Country: US (occurrence: US)
  Receive Date: 20230216
  Receipt Date: 20230216
  Transmission Date: 20230417
  Serious: Yes (Other)
  Sender: FDA-Public Use
  Company Number: US-FreseniusKabi-FK202302023

PATIENT
  Age: 71 Year
  Sex: Male

DRUGS (6)
  1. CYTARABINE [Suspect]
     Active Substance: CYTARABINE
     Indication: Lymphocytic lymphoma
     Dosage: BI-WEEKLY
     Route: 037
  2. METHOTREXATE [Suspect]
     Active Substance: METHOTREXATE
     Indication: Lymphocytic lymphoma
     Dosage: BI-WEEKLY
     Route: 037
  3. METHOTREXATE [Suspect]
     Active Substance: METHOTREXATE
     Dosage: HIGH-DOSE
  4. RITUXIMAB [Suspect]
     Active Substance: RITUXIMAB
     Indication: Lymphocytic lymphoma
  5. RITUXIMAB [Suspect]
     Active Substance: RITUXIMAB
     Dosage: 6 DOSES
     Route: 037
  6. unspecified steriods [Concomitant]
     Indication: Lymphocytic lymphoma

REACTIONS (1)
  - Renal failure [Unknown]
